FAERS Safety Report 18760828 (Version 1)
Quarter: 2021Q1

REPORT INFORMATION
  Report Type: Spontaneous
  Country: CH (occurrence: CH)
  Receive Date: 20210120
  Receipt Date: 20210120
  Transmission Date: 20210419
  Serious: Yes (Other)
  Sender: FDA-Public Use
  Company Number: CH-TEVA-2021-CH-1869610

PATIENT
  Age: 7 Year
  Sex: Male

DRUGS (4)
  1. MELPHALAN. [Suspect]
     Active Substance: MELPHALAN
     Indication: CONGENITAL RETINOBLASTOMA
     Dosage: HE HAD RECEIVED 8 INTRAVITREAL INJECTIONS MELPHALAN
     Route: 050
  2. CARBOPLATIN. [Suspect]
     Active Substance: CARBOPLATIN
     Indication: CONGENITAL RETINOBLASTOMA
     Dosage: HE HAD RECEIVED 3 CYCLES OF CARBOPLATIN
     Route: 042
  3. MELPHALAN. [Suspect]
     Active Substance: MELPHALAN
     Dosage: HE HAD RECEIVED 6 INTRACAMERAL INJECTIONS MELPHALAN
     Route: 050
  4. ETOPOSIDE. [Suspect]
     Active Substance: ETOPOSIDE
     Indication: CONGENITAL RETINOBLASTOMA
     Dosage: HE HAD RECEIVED 3 CYCLES OF ETOPOSIDE
     Route: 042

REACTIONS (2)
  - Tractional retinal detachment [Recovered/Resolved]
  - Retinopathy proliferative [Unknown]
